FAERS Safety Report 9961514 (Version 5)
Quarter: 2014Q2

REPORT INFORMATION
  Report Type: Spontaneous
  Country: ES (occurrence: ES)
  Receive Date: 20140305
  Receipt Date: 20140515
  Transmission Date: 20141212
  Serious: Yes (Hospitalization, Other)
  Sender: FDA-Public Use
  Company Number: ES-PFIZER INC-2014058137

PATIENT
  Age: 82 Year
  Sex: Male

DRUGS (19)
  1. LYRICA [Suspect]
     Indication: RADICULOPATHY
     Dosage: 25 MG, 2X/DAY
  2. LYRICA [Suspect]
     Indication: INTERVERTEBRAL DISC PROTRUSION
     Dosage: 25 MG, 1X/DAY DURING ONE WEEK
     Route: 048
     Dates: start: 20120607
  3. LYRICA [Suspect]
     Dosage: 25 MG, EVERY 12H DURING ONE WEEK
     Route: 048
  4. LYRICA [Suspect]
     Dosage: 25 MG, 3X/DAY, UNTIL GET THE SUITABLE DOSE
     Route: 048
  5. LYRICA [Suspect]
     Dosage: 75 MG, 1X/DAY
     Route: 048
     Dates: start: 20131129
  6. LYRICA [Suspect]
     Dosage: 25-0-75, DURING ONE WEEK
     Route: 048
  7. LYRICA [Suspect]
     Dosage: 50-0-75, DURING ONE WEEK
     Route: 048
     Dates: end: 201401
  8. LYRICA [Suspect]
     Dosage: 75-0-75 DURING ONE WEEK
  9. LYRICA [Suspect]
     Dosage: 75-0-100 DURING ONE WEEK
  10. LYRICA [Suspect]
     Dosage: 75-0-150 DURING ONE WEEK
  11. LYRICA [Suspect]
     Dosage: 75 MG, 2X/DAY (IN THE MORNINGS AND IN THE EVENINGS)
     Route: 048
     Dates: start: 201401, end: 20140206
  12. OMEPRAZOLE [Concomitant]
     Dosage: 20 MG, UNK
  13. ADIRO [Concomitant]
     Dosage: 100 MG, UNK
  14. ATORVASTATIN [Concomitant]
     Dosage: 40 MG, UNK
  15. LISINOPRIL [Concomitant]
     Dosage: 5 MG, UNK
  16. TERAZOSIN [Concomitant]
     Dosage: 5 MG, UNK
  17. LORAZEPAM [Concomitant]
     Dosage: 1 MG, UNK
  18. PARACETAMOL [Concomitant]
     Dosage: 1 G, UNK
  19. ATENOLOL [Concomitant]
     Dosage: UNK, 1/2

REACTIONS (13)
  - Toxicity to various agents [Recovering/Resolving]
  - Delirium [Recovering/Resolving]
  - Blindness transient [Recovering/Resolving]
  - Fall [Recovering/Resolving]
  - Fracture [Recovering/Resolving]
  - Somnolence [Recovering/Resolving]
  - Constipation [Recovering/Resolving]
  - Dizziness [Recovering/Resolving]
  - Decreased appetite [Recovering/Resolving]
  - Vision blurred [Recovering/Resolving]
  - Fatigue [Recovering/Resolving]
  - Drug ineffective [Recovering/Resolving]
  - Malaise [Recovering/Resolving]
